FAERS Safety Report 16765515 (Version 2)
Quarter: 2019Q3

REPORT INFORMATION
  Report Type: Spontaneous
  Country: US (occurrence: US)
  Receive Date: 20190903
  Receipt Date: 20190911
  Transmission Date: 20191005
  Serious: No
  Sender: FDA-Public Use
  Company Number: US-JNJFOC-20190837217

PATIENT
  Age: 77 Year
  Sex: Female
  Weight: 72.64 kg

DRUGS (2)
  1. TYLENOL EXTRA STRENGTH [Suspect]
     Active Substance: ACETAMINOPHEN
     Indication: FRACTURE PAIN
  2. TYLENOL EXTRA STRENGTH [Suspect]
     Active Substance: ACETAMINOPHEN
     Indication: BACK PAIN
     Route: 048
     Dates: start: 20190615, end: 20190702

REACTIONS (2)
  - Pruritus [Recovering/Resolving]
  - Rash vesicular [Recovered/Resolved]

NARRATIVE: CASE EVENT DATE: 20190625
